FAERS Safety Report 7268521-4 (Version None)
Quarter: 2011Q1

REPORT INFORMATION
  Report Type: 
  Country: None (occurrence: None)
  Receive Date: 20110121
  Receipt Date: 20110118
  Transmission Date: 20110831
  Serious: Yes (Death, Other)
  Sender: FDA-Public Use
  Company Number: CL-285-2011

PATIENT
  Age: 29 Year
  Sex: Female

DRUGS (1)
  1. METRONIDAZOLE [Suspect]
     Indication: AMOEBIC DYSENTERY
     Dosage: 400MG TDS

REACTIONS (4)
  - HEPATIC AMOEBIASIS [None]
  - DRUG INEFFECTIVE [None]
  - SKIN NECROSIS [None]
  - AMOEBIC SKIN ULCER [None]
